FAERS Safety Report 5716253-3 (Version None)
Quarter: 2008Q2

REPORT INFORMATION
  Report Type: 
  Country: None (occurrence: None)
  Receive Date: 20080424
  Receipt Date: 20080417
  Transmission Date: 20081010
  Serious: Yes (Hospitalization)
  Sender: FDA-Public Use
  Company Number: A0723453A

PATIENT
  Age: 66 Year
  Sex: Female

DRUGS (8)
  1. SEREVENT [Suspect]
     Indication: ASTHMA
     Dosage: 50MCG TWICE PER DAY
     Route: 055
     Dates: start: 19980101, end: 19980101
  2. ADVAIR HFA [Suspect]
     Indication: CHRONIC OBSTRUCTIVE PULMONARY DISEASE
     Route: 055
     Dates: start: 20050301, end: 20060401
  3. FLOVENT [Suspect]
     Indication: CHRONIC OBSTRUCTIVE PULMONARY DISEASE
     Dosage: 110MCG VARIABLE DOSE
     Route: 055
     Dates: start: 19800101
  4. ALBUTEROL [Concomitant]
  5. ATROVENT [Concomitant]
  6. SPIRIVA [Concomitant]
  7. LODINE [Concomitant]
  8. OXYGEN [Concomitant]

REACTIONS (6)
  - DRUG INEFFECTIVE [None]
  - HAEMOPTYSIS [None]
  - MEDICATION ERROR [None]
  - NON-CARDIAC CHEST PAIN [None]
  - PNEUMONIA [None]
  - THROAT IRRITATION [None]
